FAERS Safety Report 9093107 (Version 1)
Quarter: 2013Q1

REPORT INFORMATION
  Report Type: Report from Study
  Country: BR (occurrence: BR)
  Receive Date: 20130201
  Receipt Date: 20130201
  Transmission Date: 20140127
  Serious: Yes (Death, Hospitalization)
  Sender: FDA-Public Use
  Company Number: BR-ABBOTT-13P-020-1043216-00

PATIENT
  Age: 68 Year
  Sex: Female
  Weight: 70 kg

DRUGS (4)
  1. HUMIRA [Suspect]
     Indication: PSORIASIS
     Route: 058
  2. HUMIRA [Suspect]
     Route: 058
  3. UNKNOWN DRUG [Concomitant]
     Indication: BLOOD PRESSURE ABNORMAL
  4. UNKNOWN DRUG [Concomitant]
     Indication: GENERALISED OEDEMA

REACTIONS (9)
  - Hepatic failure [Fatal]
  - Injection site reaction [Unknown]
  - Injection site pain [Not Recovered/Not Resolved]
  - Vomiting [Not Recovered/Not Resolved]
  - Infection [Fatal]
  - Renal failure [Fatal]
  - Respiratory failure [Fatal]
  - Cardiomegaly [Fatal]
  - Feeling abnormal [Unknown]
